FAERS Safety Report 13892820 (Version 2)
Quarter: 2021Q3

REPORT INFORMATION
  Report Type: Spontaneous
  Country: US (occurrence: US)
  Receive Date: 20170822
  Receipt Date: 20210706
  Transmission Date: 20211014
  Serious: Yes (Other)
  Sender: FDA-Public Use
  Company Number: US-ROCHE-1453053

PATIENT
  Age: 61 Year
  Sex: Female
  Weight: 54.48 kg

DRUGS (2)
  1. KADCYLA [Suspect]
     Active Substance: ADO-TRASTUZUMAB EMTANSINE
     Indication: HER2 POSITIVE BREAST CANCER
     Route: 065
     Dates: start: 2021
  2. HERCEPTIN [Suspect]
     Active Substance: TRASTUZUMAB
     Indication: HER2 POSITIVE BREAST CANCER
     Route: 065
     Dates: start: 201307

REACTIONS (9)
  - Diastolic dysfunction [Recovered/Resolved]
  - Optic nerve disorder [Not Recovered/Not Resolved]
  - Blood pressure increased [Not Recovered/Not Resolved]
  - Ejection fraction decreased [Recovered/Resolved]
  - Dyspnoea [Not Recovered/Not Resolved]
  - Breast cancer recurrent [Unknown]
  - Cardiac dysfunction [Unknown]
  - Chest discomfort [Not Recovered/Not Resolved]
  - Glaucoma [Not Recovered/Not Resolved]

NARRATIVE: CASE EVENT DATE: 201311
